FAERS Safety Report 7357690-3 (Version None)
Quarter: 2011Q1

REPORT INFORMATION
  Report Type: 
  Country: None (occurrence: None)
  Receive Date: 20110309
  Receipt Date: 20110217
  Transmission Date: 20110831
  Serious: Yes (Congenital Anomaly, Other)
  Sender: FDA-Public Use
  Company Number: FK201100221

PATIENT

DRUGS (2)
  1. MAGNESIUM SULFATE [Suspect]
     Indication: DRUG EXPOSURE DURING PREGNANCY
  2. MAGNESIUM SULFATE [Suspect]
     Indication: TOCOLYSIS

REACTIONS (3)
  - METAPHYSEAL DYSPLASIA [None]
  - MATERNAL DRUGS AFFECTING FOETUS [None]
  - BLOOD ALKALINE PHOSPHATASE INCREASED [None]
